FAERS Safety Report 8014106-1 (Version None)
Quarter: 2011Q4

REPORT INFORMATION
  Report Type: 
  Country: None (occurrence: None)
  Receive Date: 20111223
  Receipt Date: 20110913
  Transmission Date: 20120403
  Serious: Yes (Hospitalization)
  Sender: FDA-Public Use
  Company Number: AUR-APL-2011-05080

PATIENT
  Age: 20 Year
  Sex: Male

DRUGS (3)
  1. ALPRAZOLAM [Suspect]
     Indication: PRODUCT USED FOR UNKNOWN INDICATION
     Dosage: ORAL
     Route: 048
  2. OXYCODONE HCL [Suspect]
     Indication: PRODUCT USED FOR UNKNOWN INDICATION
     Dosage: ORAL
     Route: 048
  3. DUST OFF SPRAY [Suspect]
     Indication: PRODUCT USED FOR UNKNOWN INDICATION

REACTIONS (7)
  - TROPONIN INCREASED [None]
  - MENTAL STATUS CHANGES [None]
  - BLOOD CREATINE PHOSPHOKINASE INCREASED [None]
  - DRUG ABUSE [None]
  - ELECTROCARDIOGRAM ST-T CHANGE [None]
  - CARDIOMYOPATHY [None]
  - BLOOD CREATINE PHOSPHOKINASE MB INCREASED [None]
